FAERS Safety Report 11303770 (Version 1)
Quarter: 2015Q3

REPORT INFORMATION
  Report Type: Spontaneous
  Country: US (occurrence: US)
  Receive Date: 20150723
  Receipt Date: 20150723
  Transmission Date: 20151125
  Serious: No
  Sender: FDA-Public Use
  Company Number: US-AMGEN-USASP2015070130

PATIENT
  Age: 49 Year
  Sex: Female

DRUGS (13)
  1. POTASSIUM [Concomitant]
     Active Substance: POTASSIUM
     Dosage: 99 MG, QD
  2. CELEBREX [Concomitant]
     Active Substance: CELECOXIB
     Dosage: 200 MG, BID
  3. MAGNESIUM GLYCINATE [Concomitant]
     Active Substance: MAGNESIUM GLYCINATE
     Dosage: 400 MG, QD
  4. PRILOSEC [Concomitant]
     Active Substance: OMEPRAZOLE MAGNESIUM
     Dosage: UNK UNK, QD
  5. PREDNISONE. [Concomitant]
     Active Substance: PREDNISONE
     Dosage: 7.5 MG, QD
  6. VITAMIN D3 [Concomitant]
     Active Substance: CHOLECALCIFEROL
     Dosage: 5000 IU, QD
  7. GABAPENTIN. [Concomitant]
     Active Substance: GABAPENTIN
     Dosage: UNK
  8. VENLAFAXINE [Concomitant]
     Active Substance: VENLAFAXINE HYDROCHLORIDE
     Dosage: 75 MG, UNK
  9. LEVOTHYROXINE. [Concomitant]
     Active Substance: LEVOTHYROXINE
     Dosage: 100 MUG, QD
  10. OMEGA 3 FISH OILS [Concomitant]
     Dosage: UNK UNK, BID (1200/360MG TWICE A DAY)
  11. CALCIUM +D3 [Concomitant]
     Active Substance: CALCIUM\CHOLECALCIFEROL
     Dosage: UNK (1200MG LIQUID CALCIUM/VITAMIN D3(1000IU))
  12. ENBREL [Suspect]
     Active Substance: ETANERCEPT
     Indication: RHEUMATOID ARTHRITIS
     Dosage: 50 MG, UNK
     Route: 065
     Dates: start: 20150709
  13. METHOTREXATE [Concomitant]
     Active Substance: METHOTREXATE
     Dosage: 20 MG, QWK (2.5MG 8 TABS ONCE A WEEK)

REACTIONS (11)
  - Erythema [Unknown]
  - Burning sensation [Unknown]
  - Dry eye [Not Recovered/Not Resolved]
  - Swelling [Unknown]
  - Adverse drug reaction [Unknown]
  - Urticaria [Unknown]
  - Blister [Unknown]
  - Feeling abnormal [Unknown]
  - Pruritus [Unknown]
  - Hypersensitivity [Unknown]
  - Rash pustular [Unknown]

NARRATIVE: CASE EVENT DATE: 201507
